FAERS Safety Report 6173221-8 (Version None)
Quarter: 2009Q2

REPORT INFORMATION
  Report Type: 
  Country: None (occurrence: None)
  Receive Date: 20090428
  Receipt Date: 20090416
  Transmission Date: 20091009
  Serious: Yes (Disabling, Other)
  Sender: FDA-Public Use
  Company Number: 2007S1000181

PATIENT
  Sex: Male
  Weight: 70 kg

DRUGS (5)
  1. CUBICIN [Suspect]
     Indication: STAPHYLOCOCCAL SEPSIS
     Dosage: 4.6 MG/KG; Q24H; IV
     Route: 042
     Dates: start: 20070202, end: 20070210
  2. CLINDAMYCIN HCL [Concomitant]
  3. FLUCLOXACILLIN [Concomitant]
  4. FUSIDIC ACID [Concomitant]
  5. CEFTRIAXONE [Concomitant]

REACTIONS (2)
  - DEAFNESS NEUROSENSORY [None]
  - RASH ERYTHEMATOUS [None]
